APPROVED DRUG PRODUCT: DOXYCYCLINE HYCLATE
Active Ingredient: DOXYCYCLINE HYCLATE
Strength: EQ 100MG BASE
Dosage Form/Route: CAPSULE;ORAL
Application: A062469 | Product #002
Applicant: SUPERPHARM CORP
Approved: Oct 31, 1984 | RLD: No | RS: No | Type: DISCN